FAERS Safety Report 10216460 (Version 1)
Quarter: 2014Q2

REPORT INFORMATION
  Report Type: Spontaneous
  Country: PT (occurrence: PT)
  Receive Date: 20140604
  Receipt Date: 20140604
  Transmission Date: 20141212
  Serious: Yes (Hospitalization)
  Sender: FDA-Public Use
  Company Number: PT-ACTAVIS-2014-11863

PATIENT
  Age: 33 Year
  Sex: Male

DRUGS (5)
  1. TACROLIMUS (UNKNOWN) [Suspect]
     Indication: IMMUNOSUPPRESSION
     Dosage: 16 MG, UNK
     Route: 065
  2. TACROLIMUS (UNKNOWN) [Suspect]
     Dosage: 0.15 MG/KG, UNK
     Route: 065
  3. MYCOPHENOLATE MOFETIL (UNKNOWN) [Suspect]
     Indication: IMMUNOSUPPRESSION
     Dosage: 1440 MG, DAILY
     Route: 065
  4. METHYLPREDNISOLONE [Concomitant]
     Indication: IMMUNOSUPPRESSION
     Dosage: 8 MG/KG, UNK
     Route: 065
  5. PREDNISONE [Concomitant]
     Indication: PRODUCT USED FOR UNKNOWN INDICATION
     Dosage: 20 MG, UNK
     Route: 065

REACTIONS (2)
  - Haemolytic uraemic syndrome [Recovered/Resolved]
  - Thrombocytopenia [Unknown]
